FAERS Safety Report 9034790 (Version 1)
Quarter: 2013Q1

REPORT INFORMATION
  Report Type: Spontaneous
  Country: IT (occurrence: IT)
  Receive Date: 20130128
  Receipt Date: 20130128
  Transmission Date: 20140127
  Serious: Yes (Other)
  Sender: FDA-Public Use
  Company Number: IT-TEVA-381726ISR

PATIENT
  Age: 66 Year
  Sex: Male

DRUGS (3)
  1. CARVEDILOL [Suspect]
     Indication: INTENTIONAL SELF-INJURY
     Dosage: 212.5 MILLIGRAM DAILY;
     Route: 048
     Dates: start: 20121001, end: 20121001
  2. COUMADIN [Suspect]
     Indication: INTENTIONAL SELF-INJURY
     Dosage: 10 DOSAGE FORMS DAILY;
     Route: 048
     Dates: start: 20121001, end: 20121001
  3. ENAPREN [Suspect]
     Indication: INTENTIONAL SELF-INJURY
     Dosage: 30 MILLIGRAM DAILY;
     Route: 048
     Dates: start: 20121001, end: 20121001

REACTIONS (2)
  - Drug abuse [Recovering/Resolving]
  - Sopor [Recovering/Resolving]
